FAERS Safety Report 5127387-9 (Version None)
Quarter: 2006Q4

REPORT INFORMATION
  Report Type: 
  Country: None (occurrence: None)
  Receive Date: 20061012
  Receipt Date: 20061012
  Transmission Date: 20070319
  Serious: Yes (Other)
  Sender: FDA-Public Use
  Company Number: None

PATIENT
  Age: 47 Year
  Sex: Male

DRUGS (2)
  1. TUBERCULINE PURIFIED PROTEIN DERIVATIVE (AVENTIS PASTEUR) [Suspect]
     Dosage: INTRADERMAL / (L) FOREARM
     Route: 023
     Dates: start: 20060926, end: 20060926
  2. LISINOPRIL [Concomitant]

REACTIONS (5)
  - BLOOD PRESSURE SYSTOLIC INCREASED [None]
  - DIZZINESS [None]
  - DYSKINESIA [None]
  - HYPERHIDROSIS [None]
  - TREMOR [None]
